FAERS Safety Report 18376761 (Version 1)
Quarter: 2020Q4

REPORT INFORMATION
  Report Type: Report from Study
  Country: US (occurrence: US)
  Receive Date: 20201013
  Receipt Date: 20201013
  Transmission Date: 20210114
  Serious: Yes (Other)
  Sender: FDA-Public Use
  Company Number: US-JNJFOC-20201006910

PATIENT

DRUGS (4)
  1. TRUVADA [Concomitant]
     Active Substance: EMTRICITABINE\TENOFOVIR DISOPROXIL FUMARATE
     Route: 065
  2. RITONAVIR. [Concomitant]
     Active Substance: RITONAVIR
     Route: 065
  3. ABACAVIR. [Concomitant]
     Active Substance: ABACAVIR
     Route: 065
  4. DARUNAVIR [Suspect]
     Active Substance: DARUNAVIR
     Indication: HIV INFECTION
     Route: 065

REACTIONS (3)
  - Myocardial infarction [Unknown]
  - Cardiovascular disorder [Unknown]
  - Ischaemic stroke [Unknown]
